FAERS Safety Report 10192482 (Version 1)
Quarter: 2014Q2

REPORT INFORMATION
  Report Type: Spontaneous
  Country: US (occurrence: US)
  Receive Date: 20140523
  Receipt Date: 20140523
  Transmission Date: 20141212
  Serious: No
  Sender: FDA-Public Use
  Company Number: US-PFIZER INC-2014140169

PATIENT
  Age: 71 Year
  Sex: Female

DRUGS (1)
  1. BOSULIF [Suspect]
     Indication: CHRONIC LEUKAEMIA
     Dosage: 500 MG, 1X/DAY
     Dates: start: 20140403

REACTIONS (2)
  - Cough [Unknown]
  - Chills [Unknown]
